FAERS Safety Report 19944589 (Version 3)
Quarter: 2022Q3

REPORT INFORMATION
  Report Type: Report from Study
  Country: DO (occurrence: DO)
  Receive Date: 20211012
  Receipt Date: 20220729
  Transmission Date: 20221027
  Serious: Yes (Other)
  Sender: FDA-Public Use
  Company Number: PHHY2017DO090548

PATIENT
  Age: 32 Year
  Sex: Female

DRUGS (9)
  1. GILENYA [Suspect]
     Active Substance: FINGOLIMOD HYDROCHLORIDE
     Indication: Relapsing-remitting multiple sclerosis
     Dosage: 0.5 MG, QD
     Route: 065
     Dates: start: 20160617
  2. GILENYA [Suspect]
     Active Substance: FINGOLIMOD HYDROCHLORIDE
     Indication: Multiple sclerosis
     Dosage: 0.5 MG, QD
     Route: 048
     Dates: start: 20170513
  3. GILENYA [Suspect]
     Active Substance: FINGOLIMOD HYDROCHLORIDE
     Dosage: 0.5 MG, QD
     Route: 048
     Dates: start: 20170613
  4. GILENYA [Suspect]
     Active Substance: FINGOLIMOD HYDROCHLORIDE
     Dosage: 0.5 MG, QD
     Route: 048
     Dates: start: 2020, end: 2021
  5. CARBAMAZEPINE [Concomitant]
     Active Substance: CARBAMAZEPINE
     Indication: Product used for unknown indication
     Dosage: UNK
     Route: 065
  6. LEVETIRACETAM [Concomitant]
     Active Substance: LEVETIRACETAM
     Indication: Product used for unknown indication
     Dosage: UNK
     Route: 065
  7. MELOXICAM [Concomitant]
     Active Substance: MELOXICAM
     Indication: Product used for unknown indication
     Dosage: UNK
     Route: 065
  8. TERIL [Concomitant]
     Indication: Product used for unknown indication
     Dosage: UNK
     Route: 065
  9. LAMTOX [Concomitant]
     Indication: Product used for unknown indication
     Dosage: UNK
     Route: 065

REACTIONS (26)
  - Abscess limb [Not Recovered/Not Resolved]
  - Seizure [Recovered/Resolved]
  - Jaw fracture [Not Recovered/Not Resolved]
  - Cerebrovascular accident [Unknown]
  - Progressive multifocal leukoencephalopathy [Unknown]
  - Memory impairment [Unknown]
  - Underweight [Unknown]
  - Cognitive disorder [Unknown]
  - Gait disturbance [Unknown]
  - Eye pain [Unknown]
  - Confusional state [Unknown]
  - Fall [Unknown]
  - Disorientation [Unknown]
  - Lip injury [Unknown]
  - Pyrexia [Unknown]
  - Oedema peripheral [Unknown]
  - Asthenia [Unknown]
  - Headache [Recovered/Resolved]
  - Fatigue [Recovering/Resolving]
  - Dizziness [Recovered/Resolved]
  - Pustule [Unknown]
  - Dizziness [Unknown]
  - Headache [Unknown]
  - Face injury [Not Recovered/Not Resolved]
  - Malaise [Unknown]
  - Vomiting [Unknown]

NARRATIVE: CASE EVENT DATE: 20210930
